FAERS Safety Report 13613373 (Version 2)
Quarter: 2017Q2

REPORT INFORMATION
  Report Type: Report from Study
  Country: US (occurrence: US)
  Receive Date: 20170605
  Receipt Date: 20170608
  Transmission Date: 20170830
  Serious: Yes (Hospitalization)
  Sender: FDA-Public Use
  Company Number: US-ACTELION-A-US2017-154829

PATIENT
  Age: 82 Year
  Sex: Female
  Weight: 67.12 kg

DRUGS (2)
  1. WARFARIN [Concomitant]
     Active Substance: WARFARIN
  2. OPSUMIT [Suspect]
     Active Substance: MACITENTAN
     Indication: PULMONARY ARTERIAL HYPERTENSION
     Dosage: 10 MG, QD
     Route: 048

REACTIONS (5)
  - Rash macular [Unknown]
  - Feeling abnormal [Unknown]
  - Dyspnoea exertional [Unknown]
  - Nausea [Unknown]
  - Rash pruritic [Unknown]
